FAERS Safety Report 9763292 (Version 1)
Quarter: 2013Q4

REPORT INFORMATION
  Report Type: Spontaneous
  Country: US (occurrence: US)
  Receive Date: 20131216
  Receipt Date: 20131216
  Transmission Date: 20140711
  Serious: No
  Sender: FDA-Public Use
  Company Number: US-BIOGENIDEC-2013BI105386

PATIENT
  Age: 56 Year
  Sex: Female

DRUGS (13)
  1. TECFIDERA [Suspect]
     Indication: MULTIPLE SCLEROSIS
     Route: 048
     Dates: start: 20130829
  2. TECFIDERA [Suspect]
     Indication: MULTIPLE SCLEROSIS
     Route: 048
     Dates: start: 2013
  3. TECFIDERA [Suspect]
     Indication: MULTIPLE SCLEROSIS
     Route: 048
     Dates: start: 20130914
  4. TECFIDERA [Suspect]
     Indication: MULTIPLE SCLEROSIS
     Route: 048
     Dates: start: 20130914
  5. MODAFINIL [Concomitant]
  6. SYNTHROID [Concomitant]
  7. LIPITOR [Concomitant]
  8. TRIAMTERENE-HCTZ [Concomitant]
  9. CYMBALTA [Concomitant]
  10. POTASSIUM [Concomitant]
  11. HYDROXYZINE [Concomitant]
  12. FUROSEMIDE [Concomitant]
  13. LEVOTHYROXINE [Concomitant]

REACTIONS (3)
  - Weight increased [Unknown]
  - Fatigue [Unknown]
  - Flushing [Unknown]
